FAERS Safety Report 23510182 (Version 1)
Quarter: 2024Q1

REPORT INFORMATION
  Report Type: Spontaneous
  Country: FR (occurrence: FR)
  Receive Date: 20240211
  Receipt Date: 20240211
  Transmission Date: 20240410
  Serious: Yes (Other)
  Sender: FDA-Public Use
  Company Number: FR-AFSSAPS-AM2024000049

PATIENT
  Age: 43 Year
  Sex: Female
  Weight: 73 kg

DRUGS (5)
  1. EPHEDRINE [Suspect]
     Active Substance: EPHEDRINE
     Indication: Hypotension
     Dosage: 12 MILLIGRAM (1 TOTAL)
     Route: 042
     Dates: start: 20240108, end: 20240108
  2. ACETAMINOPHEN [Suspect]
     Active Substance: ACETAMINOPHEN
     Indication: Pain prophylaxis
     Dosage: 1000 MILLIGRAM (1 TOTAL)
     Route: 042
     Dates: start: 20240108, end: 20240108
  3. SUFENTANIL [Suspect]
     Active Substance: SUFENTANIL
     Indication: Induction of anaesthesia
     Dosage: 25 MICROGRAM (1 TOTAL)
     Route: 042
     Dates: start: 20240108, end: 20240108
  4. ACUPAN [Suspect]
     Active Substance: NEFOPAM HYDROCHLORIDE
     Indication: Pain prophylaxis
     Dosage: 20 MILLIGRAM (1 TOTAL)
     Route: 042
     Dates: start: 20240108, end: 20240108
  5. PROPOFOL LIPURO [Suspect]
     Active Substance: PROPOFOL
     Indication: Induction of anaesthesia
     Dosage: 250 MILLIGRAM (1 TOTAL)
     Route: 042
     Dates: start: 20240108, end: 20240108

REACTIONS (1)
  - Urticaria [Recovered/Resolved]

NARRATIVE: CASE EVENT DATE: 20240108
